FAERS Safety Report 7772600-2 (Version None)
Quarter: 2011Q3

REPORT INFORMATION
  Report Type: 
  Country: None (occurrence: None)
  Receive Date: 20110922
  Receipt Date: 20110318
  Transmission Date: 20111222
  Serious: No
  Sender: FDA-Public Use
  Company Number: US-ASTRAZENECA-2011SE15582

PATIENT
  Age: 57 Year
  Sex: Female
  Weight: 61.2 kg

DRUGS (3)
  1. LISINOPRIL [Concomitant]
  2. SEROQUEL [Suspect]
     Indication: SEDATION
     Route: 048
  3. PAROXETINE HYDROCHLORIDE [Concomitant]

REACTIONS (2)
  - DRUG DOSE OMISSION [None]
  - BLOOD PRESSURE INCREASED [None]
